FAERS Safety Report 14032112 (Version 1)
Quarter: 2017Q4

REPORT INFORMATION
  Report Type: Spontaneous
  Country: AR (occurrence: AR)
  Receive Date: 20171002
  Receipt Date: 20171002
  Transmission Date: 20180321
  Serious: Yes (Other)
  Sender: FDA-Public Use
  Company Number: AR-PFIZER INC-2017416879

PATIENT
  Age: 52 Year
  Sex: Female

DRUGS (1)
  1. XELJANZ [Suspect]
     Active Substance: TOFACITINIB CITRATE
     Indication: RHEUMATOID ARTHRITIS
     Dosage: 5 MG, 2X/DAY
     Dates: start: 20170404, end: 20170525

REACTIONS (9)
  - Bone marrow failure [Unknown]
  - Tonsillitis [Recovering/Resolving]
  - Immunodeficiency common variable [Not Recovered/Not Resolved]
  - Pneumonia [Recovering/Resolving]
  - Ear infection [Recovering/Resolving]
  - Disease recurrence [Recovering/Resolving]
  - Pyrexia [Recovering/Resolving]
  - Sinusitis [Recovering/Resolving]
  - Bronchitis [Recovering/Resolving]

NARRATIVE: CASE EVENT DATE: 201704
